FAERS Safety Report 9248957 (Version 1)
Quarter: 2013Q1

REPORT INFORMATION
  Report Type: Spontaneous
  Country: US (occurrence: None)
  Receive Date: 20130305
  Receipt Date: 20130305
  Transmission Date: 20140127
  Serious: Yes (Hospitalization)
  Sender: FDA-Public Use
  Company Number: 163-21880-12091601 (0)

PATIENT
  Age: 76 Year
  Sex: Female
  Weight: 52.4 kg

DRUGS (4)
  1. REVLIMID (LENALIDOMIDE) (25 MILLIGRAM, CAPSULES) [Suspect]
     Indication: PLASMA CELL MYELOMA
     Dosage: 25 MG, 21 IN 21 D, PO
     Route: 048
     Dates: start: 2010
  2. DEXAMETHASONE (DEXAMETHASONE) [Concomitant]
  3. WARFARIN (WARFARIN) [Concomitant]
  4. MOM (MAGNESIUM HYDROXIDE) [Concomitant]

REACTIONS (1)
  - Chronic obstructive pulmonary disease [None]
